FAERS Safety Report 4505038-1 (Version None)
Quarter: 2004Q4

REPORT INFORMATION
  Report Type: 
  Country: None (occurrence: None)
  Receive Date: 20041015
  Receipt Date: 20030904
  Transmission Date: 20050328
  Serious: Yes (Other)
  Sender: FDA-Public Use
  Company Number: 2003021325

PATIENT
  Age: 49 Year
  Sex: Female
  Weight: 56.6996 kg

DRUGS (4)
  1. NEURONTIN [Suspect]
     Indication: NEUROPATHIC PAIN
     Dosage: 300 MG (TID) ORAL
     Route: 048
     Dates: start: 20030101, end: 20030527
  2. PROPACET (PARACETAMOL, DEXTROPROPOXYPHENE) [Concomitant]
  3. LORAZEPAM [Concomitant]
  4. DOXEPIN HCL [Concomitant]

REACTIONS (13)
  - ASTHENIA [None]
  - CONVULSION [None]
  - FALL [None]
  - FEELING ABNORMAL [None]
  - HEAD DISCOMFORT [None]
  - HEADACHE [None]
  - HYPERSOMNIA [None]
  - MUSCULOSKELETAL STIFFNESS [None]
  - NAUSEA [None]
  - NERVOUSNESS [None]
  - PAIN [None]
  - PARAESTHESIA [None]
  - TREMOR [None]
